FAERS Safety Report 20242756 (Version 2)
Quarter: 2022Q1

REPORT INFORMATION
  Report Type: Spontaneous
  Country: CN (occurrence: None)
  Receive Date: 20211228
  Receipt Date: 20220111
  Transmission Date: 20220424
  Serious: Yes (Other)
  Sender: FDA-Public Use
  Company Number: 2021A895802

PATIENT
  Age: 69 Year
  Sex: Female
  Weight: 40 kg

DRUGS (4)
  1. BUDESONIDE [Suspect]
     Active Substance: BUDESONIDE
     Indication: Asthma
     Route: 055
     Dates: start: 20211215, end: 20211215
  2. BUDESONIDE [Suspect]
     Active Substance: BUDESONIDE
     Indication: Asthma
     Route: 055
     Dates: start: 20211215, end: 20211215
  3. TERBUTALINE [Suspect]
     Active Substance: TERBUTALINE
     Indication: Asthma
     Route: 055
     Dates: start: 20211215, end: 20211215
  4. TERBUTALINE [Suspect]
     Active Substance: TERBUTALINE
     Indication: Asthma
     Route: 055
     Dates: start: 20211215, end: 20211215

REACTIONS (1)
  - Dyspnoea [Recovered/Resolved]

NARRATIVE: CASE EVENT DATE: 20211215
